FAERS Safety Report 12093162 (Version 1)
Quarter: 2016Q1

REPORT INFORMATION
  Report Type: Spontaneous
  Country: US (occurrence: None)
  Receive Date: 20160218
  Receipt Date: 20160218
  Transmission Date: 20160526
  Serious: Yes (Hospitalization)
  Sender: FDA-Public Use
  Company Number: None

PATIENT
  Sex: Female

DRUGS (2)
  1. INVOKANA [Suspect]
     Active Substance: CANAGLIFLOZIN
  2. METFORMIN [Suspect]
     Active Substance: METFORMIN HYDROCHLORIDE

REACTIONS (9)
  - Urinary tract disorder [None]
  - Muscle spasms [None]
  - Contraindicated drug administered [None]
  - Drug hypersensitivity [None]
  - Incorrect dose administered [None]
  - Pain [None]
  - Renal pain [None]
  - Dehydration [None]
  - Urinary tract infection [None]
